FAERS Safety Report 5312745-X (Version None)
Quarter: 2007Q2

REPORT INFORMATION
  Report Type: 
  Country: None (occurrence: None)
  Receive Date: 20070430
  Receipt Date: 20070418
  Transmission Date: 20071010
  Serious: Yes (Hospitalization)
  Sender: FDA-Public Use
  Company Number: KP-ELI_LILLY_AND_COMPANY-KR200704001876

PATIENT
  Age: 64 Year
  Sex: Male
  Weight: 55 kg

DRUGS (8)
  1. LISPRO 25LIS75NPL [Suspect]
     Indication: DIABETES MELLITUS NON-INSULIN-DEPENDENT
     Dosage: 42 IU, EACH MORNING
     Route: 058
     Dates: start: 20060515, end: 20060608
  2. LISPRO 25LIS75NPL [Suspect]
     Dosage: 26 IU, EACH EVENING
     Route: 058
     Dates: start: 20060515, end: 20060608
  3. FUROSEMIDE [Concomitant]
     Dosage: 80 MG, DAILY (1/D)
  4. SPIRONOLACTONE [Concomitant]
     Dosage: 100 MG, DAILY (1/D)
  5. ALLICIN [Concomitant]
     Dosage: 50 MG, OTHER
  6. BIPHENYL DICARBOXYLATE [Concomitant]
     Dosage: 25 MG, OTHER
  7. ALUMINIUM HYDROXIDE GEL, DRIED [Concomitant]
     Dosage: 784 MG, 2/D
  8. GASMOTIN [Concomitant]
     Dosage: 10 MG, 2/D

REACTIONS (1)
  - COMA HEPATIC [None]
